FAERS Safety Report 8290724-0 (Version None)
Quarter: 2012Q2

REPORT INFORMATION
  Report Type: 
  Country: None (occurrence: None)
  Receive Date: 20120417
  Receipt Date: 20111026
  Transmission Date: 20120825
  Serious: No
  Sender: FDA-Public Use
  Company Number: US-ASTRAZENECA-2011SE14131

PATIENT
  Age: 43 Year
  Sex: Female
  Weight: 102.1 kg

DRUGS (17)
  1. SEROQUEL [Suspect]
     Indication: DEPRESSION
     Route: 048
     Dates: start: 20100101, end: 20110301
  2. SEROQUEL [Suspect]
     Route: 048
  3. SEROQUEL [Suspect]
     Route: 048
     Dates: start: 20110301
  4. ASPIRIN [Concomitant]
  5. SEROQUEL [Suspect]
     Dosage: ONE TABLET AT PM
     Route: 048
  6. SEROQUEL [Suspect]
     Route: 048
     Dates: start: 20110301
  7. SEROQUEL [Suspect]
     Dosage: ONE TABLET AT PM
     Route: 048
  8. SYMBICORT [Concomitant]
     Route: 055
  9. SEROQUEL [Suspect]
     Indication: ANXIETY
     Route: 048
     Dates: start: 20100101, end: 20110301
  10. SEROQUEL [Suspect]
     Indication: SLEEP DISORDER
     Route: 048
     Dates: start: 20100101, end: 20110301
  11. SEROQUEL [Suspect]
     Route: 048
  12. SEROQUEL [Suspect]
     Dosage: ONE TABLET AT PM
     Route: 048
  13. SEROQUEL [Suspect]
     Route: 048
     Dates: start: 20110301
  14. SEROQUEL [Suspect]
     Route: 048
  15. LISINOPRIL [Concomitant]
     Indication: BLOOD PRESSURE ABNORMAL
     Route: 048
  16. TRIAMTERENE [Concomitant]
  17. NEXIUM [Suspect]
     Indication: HYPERCHLORHYDRIA
     Route: 048

REACTIONS (11)
  - MENTAL IMPAIRMENT [None]
  - SLEEP DISORDER DUE TO A GENERAL MEDICAL CONDITION [None]
  - OFF LABEL USE [None]
  - CONFUSIONAL STATE [None]
  - MEMORY IMPAIRMENT [None]
  - PANIC ATTACK [None]
  - LIVER FUNCTION TEST ABNORMAL [None]
  - DRUG INEFFECTIVE [None]
  - POOR QUALITY SLEEP [None]
  - PALPITATIONS [None]
  - INSOMNIA [None]
